FAERS Safety Report 21290066 (Version 3)
Quarter: 2022Q3

REPORT INFORMATION
  Report Type: Report from Study
  Country: US (occurrence: US)
  Receive Date: 20220902
  Receipt Date: 20220915
  Transmission Date: 20221027
  Serious: Yes (Death, Life-Threatening, Hospitalization, Other)
  Sender: FDA-Public Use
  Company Number: US-BRISTOL-MYERS SQUIBB COMPANY-2022-099794

PATIENT
  Age: 81 Year
  Sex: Male
  Weight: 77.1 kg

DRUGS (8)
  1. AZACITIDINE [Suspect]
     Active Substance: AZACITIDINE
     Indication: Acute myeloid leukaemia
     Dosage: 75 MG/KG?LAST DOSE PRIOR TO EVENT ONSET DATE: 10-APR-2022
     Route: 065
     Dates: start: 20220404
  2. VENETOCLAX [Suspect]
     Active Substance: VENETOCLAX
     Indication: Acute myeloid leukaemia
     Dosage: QD
     Route: 065
     Dates: start: 20220404
  3. LEVOFLOXACIN [Concomitant]
     Active Substance: LEVOFLOXACIN
     Indication: Infection prophylaxis
     Dates: start: 20220315
  4. ACYCLOVIR [Concomitant]
     Active Substance: ACYCLOVIR
     Indication: Prophylaxis
     Route: 048
     Dates: start: 20220316
  5. HIZENTRA [Concomitant]
     Active Substance: HUMAN IMMUNOGLOBULIN G
     Indication: Immunodeficiency common variable
     Route: 058
     Dates: start: 20190808
  6. ENTECAVIR [Concomitant]
     Active Substance: ENTECAVIR
     Indication: Prophylaxis
     Route: 048
     Dates: start: 20220412
  7. ADVAIR UNSPEC [Concomitant]
     Indication: Chronic obstructive pulmonary disease
     Route: 055
  8. ALBUTEROL SULFATE [Concomitant]
     Active Substance: ALBUTEROL SULFATE
     Indication: Chronic obstructive pulmonary disease
     Route: 055

REACTIONS (2)
  - Death [Fatal]
  - Gastrointestinal haemorrhage [Not Recovered/Not Resolved]

NARRATIVE: CASE EVENT DATE: 20220513
